FAERS Safety Report 5129613-9 (Version None)
Quarter: 2006Q4

REPORT INFORMATION
  Report Type: 
  Country: None (occurrence: None)
  Receive Date: 20061018
  Receipt Date: 20060719
  Transmission Date: 20070319
  Serious: Yes (Other)
  Sender: FDA-Public Use
  Company Number: FR-ROCHE-456389

PATIENT
  Age: 39 Year
  Sex: Male
  Weight: 77 kg

DRUGS (2)
  1. PEGASYS [Suspect]
     Route: 058
     Dates: start: 20041104, end: 20060331
  2. PEGASYS [Suspect]
     Route: 058
     Dates: start: 20060515

REACTIONS (1)
  - NEURALGIC AMYOTROPHY [None]
